FAERS Safety Report 18716832 (Version 1)
Quarter: 2021Q1

REPORT INFORMATION
  Report Type: Spontaneous
  Country: IT (occurrence: IT)
  Receive Date: 20210108
  Receipt Date: 20210108
  Transmission Date: 20210419
  Serious: Yes (Other)
  Sender: FDA-Public Use
  Company Number: IT-LUPIN PHARMACEUTICALS INC.-2020-11430

PATIENT
  Age: 67 Year
  Sex: Male

DRUGS (17)
  1. AZITHROMYCIN ANHYDROUS. [Suspect]
     Active Substance: AZITHROMYCIN ANHYDROUS
     Indication: COVID-19 PNEUMONIA
     Dosage: UNK
     Route: 065
     Dates: start: 2020
  2. CEFTRIAXONE. [Suspect]
     Active Substance: CEFTRIAXONE
     Indication: COVID-19 PNEUMONIA
     Dosage: UNK
     Route: 065
     Dates: start: 202003
  3. RUXOLITINIB [Suspect]
     Active Substance: RUXOLITINIB
     Indication: COVID-19 PNEUMONIA
     Dosage: 5 MILLIGRAM, BID
     Route: 042
     Dates: start: 2020
  4. ENOXAPARIN [Concomitant]
     Active Substance: ENOXAPARIN
     Indication: ANTICOAGULANT THERAPY
     Dosage: UNK
     Route: 065
     Dates: start: 2020
  5. APIXABAN [Concomitant]
     Active Substance: APIXABAN
     Indication: ANTICOAGULANT THERAPY
     Dosage: UNK (STOPPED)
     Route: 065
     Dates: start: 2020
  6. AZITHROMYCIN ANHYDROUS. [Suspect]
     Active Substance: AZITHROMYCIN ANHYDROUS
     Indication: EVIDENCE BASED TREATMENT
     Dosage: 500 MILLIGRAM, QD
     Route: 048
     Dates: start: 202003
  7. PREDNISONE. [Suspect]
     Active Substance: PREDNISONE
     Dosage: 5 MILLIGRAM, QD
     Route: 048
  8. PIPERACILLIN/TAZOBACTAM [Concomitant]
     Active Substance: PIPERACILLIN SODIUM\TAZOBACTAM SODIUM
     Indication: EVIDENCE BASED TREATMENT
     Dosage: 4.5 GRAM, TID
     Route: 042
     Dates: start: 2020
  9. HYDROXYCHLOROQUINE [Suspect]
     Active Substance: HYDROXYCHLOROQUINE
     Indication: COVID-19 PNEUMONIA
     Dosage: 400 MILLIGRAM, BID
     Route: 065
     Dates: start: 202003
  10. PREDNISONE. [Suspect]
     Active Substance: PREDNISONE
     Indication: COVID-19 PNEUMONIA
     Dosage: 25 MILLIGRAM, QD
     Route: 048
     Dates: start: 2020
  11. DEXAMETHASONE. [Suspect]
     Active Substance: DEXAMETHASONE
     Indication: COVID-19 PNEUMONIA
     Dosage: 20 MILLIGRAM, QD
     Route: 042
     Dates: start: 2020
  12. BISOPROLOL [Concomitant]
     Active Substance: BISOPROLOL
     Indication: ATRIAL FIBRILLATION
     Dosage: UNK (LOW DOSE)
     Route: 065
     Dates: start: 2020
  13. HYDROXYCHLOROQUINE [Suspect]
     Active Substance: HYDROXYCHLOROQUINE
     Indication: COVID-19 PNEUMONIA
     Dosage: 200 MILLIGRAM, QD
     Route: 065
     Dates: start: 2020
  14. DEXAMETHASONE. [Suspect]
     Active Substance: DEXAMETHASONE
     Dosage: 10 MILLIGRAM, QD
     Route: 042
     Dates: start: 2020
  15. ENOXAPARIN [Concomitant]
     Active Substance: ENOXAPARIN
     Dosage: UNK (RESTARTED)
     Route: 065
     Dates: start: 2020
  16. DOXAZOSIN [Concomitant]
     Active Substance: DOXAZOSIN MESYLATE
     Indication: HYPERTENSION
     Dosage: UNK
     Route: 065
  17. AMLODIPINE [Concomitant]
     Active Substance: AMLODIPINE BESYLATE
     Indication: HYPERTENSION
     Dosage: UNK
     Route: 065

REACTIONS (1)
  - Off label use [Unknown]

NARRATIVE: CASE EVENT DATE: 2020
